FAERS Safety Report 11768699 (Version 1)
Quarter: 2015Q4

REPORT INFORMATION
  Report Type: Spontaneous
  Country: TW (occurrence: TW)
  Receive Date: 20151123
  Receipt Date: 20151123
  Transmission Date: 20160304
  Serious: Yes (Death, Other)
  Sender: FDA-Public Use
  Company Number: TW-TAKEDA-2015TUS016570

PATIENT
  Age: 86 Year
  Sex: Male
  Weight: 41 kg

DRUGS (7)
  1. ALLOPURINOL. [Suspect]
     Active Substance: ALLOPURINOL
     Indication: GOUT
     Dosage: 200 MG QD
     Route: 048
     Dates: start: 20140726, end: 20140907
  2. FLUMARIN                           /00963302/ [Suspect]
     Active Substance: FLOMOXEF SODIUM
     Indication: PNEUMONIA
     Dosage: 1 G, BID
     Route: 065
     Dates: start: 20141006, end: 201410
  3. DIPHENHYDRAMINE. [Suspect]
     Active Substance: DIPHENHYDRAMINE
     Indication: PRODUCT USED FOR UNKNOWN INDICATION
     Dosage: UNK, Q8HR
     Route: 065
     Dates: start: 20141008, end: 20141010
  4. VENACALO-B6 [Suspect]
     Active Substance: CALCIUM BROMIDE\DIPHENHYDRAMINE HYDROCHLORIDE\PYRIDOXINE HYDROCHLORIDE
     Indication: PRODUCT USED FOR UNKNOWN INDICATION
     Dosage: 5 ML, BID
     Route: 065
     Dates: start: 20141010, end: 201410
  5. DEXAMETHASONE. [Suspect]
     Active Substance: DEXAMETHASONE
     Dosage: 0.5 %, BID
     Route: 065
     Dates: start: 20141015, end: 20141015
  6. FEBURIC [Suspect]
     Active Substance: FEBUXOSTAT
     Indication: GOUT
     Dosage: 80 MG, QD
     Route: 048
     Dates: start: 20140908, end: 20140916
  7. FEBURIC [Suspect]
     Active Substance: FEBUXOSTAT
     Dosage: 40 MG, QD
     Route: 048
     Dates: start: 20140917, end: 20141005

REACTIONS (11)
  - Rash [Fatal]
  - Pneumonia [Fatal]
  - Gastric haemorrhage [None]
  - Toxic epidermal necrolysis [None]
  - Rash generalised [None]
  - Cyanosis [None]
  - Skin haemorrhage [None]
  - Drug eruption [None]
  - Stevens-Johnson syndrome [Fatal]
  - Altered state of consciousness [None]
  - Acute respiratory failure [None]

NARRATIVE: CASE EVENT DATE: 201410
